FAERS Safety Report 10469628 (Version 1)
Quarter: 2014Q3

REPORT INFORMATION
  Report Type: Spontaneous
  Country: US (occurrence: None)
  Receive Date: 20140919
  Receipt Date: 20140919
  Transmission Date: 20150326
  Serious: Yes (Disabling, Other)
  Sender: FDA-Public Use
  Company Number: 1204-190

PATIENT
  Age: 61 Year
  Sex: Male

DRUGS (1)
  1. EYLEA [Suspect]
     Active Substance: AFLIBERCEPT
     Indication: MACULAR DEGENERATION
     Dosage: 2 DOSES, OPHTHALMIC.
     Route: 047
     Dates: start: 20111207, end: 20120404

REACTIONS (9)
  - Retinal detachment [None]
  - Hypopyon [None]
  - Visual acuity reduced [None]
  - Vitrectomy [None]
  - Streptococcus test positive [None]
  - Alpha haemolytic streptococcal infection [None]
  - Blindness transient [None]
  - Eye haemorrhage [None]
  - Endophthalmitis [None]

NARRATIVE: CASE EVENT DATE: 20120405
